FAERS Safety Report 10514547 (Version 1)
Quarter: 2014Q4

REPORT INFORMATION
  Report Type: Spontaneous
  Country: US (occurrence: US)
  Receive Date: 20141013
  Receipt Date: 20141013
  Transmission Date: 20150528
  Serious: Yes (Hospitalization)
  Sender: FDA-Public Use
  Company Number: US-TEVA-514201USA

PATIENT
  Age: 72 Year
  Sex: Male
  Weight: 87.62 kg

DRUGS (10)
  1. OXYCODONE [Concomitant]
     Active Substance: OXYCODONE
     Indication: ANAL FISSURE EXCISION
  2. LEXAPRO [Concomitant]
     Active Substance: ESCITALOPRAM OXALATE
  3. LIDOCAINE. [Concomitant]
     Active Substance: LIDOCAINE
  4. BENADRYL [Concomitant]
     Active Substance: DIPHENHYDRAMINE HYDROCHLORIDE
  5. GLIPIZIDE. [Concomitant]
     Active Substance: GLIPIZIDE
  6. PREDNISONE. [Concomitant]
     Active Substance: PREDNISONE
  7. ACTIQ [Suspect]
     Active Substance: FENTANYL CITRATE
     Indication: BREAKTHROUGH PAIN
     Dates: start: 20140923
  8. MORPHINE SULFATE. [Concomitant]
     Active Substance: MORPHINE SULFATE
     Indication: ANAL FISSURE EXCISION
  9. VIIBRYD [Concomitant]
     Active Substance: VILAZODONE HYDROCHLORIDE
  10. TUCKS [Concomitant]

REACTIONS (3)
  - Anal fissure [Unknown]
  - Proctalgia [Unknown]
  - Product use issue [Unknown]

NARRATIVE: CASE EVENT DATE: 20140925
